FAERS Safety Report 9678051 (Version 1)
Quarter: 2013Q4

REPORT INFORMATION
  Report Type: Spontaneous
  Country: GB (occurrence: GB)
  Receive Date: 20131108
  Receipt Date: 20131108
  Transmission Date: 20140711
  Serious: Yes (Hospitalization)
  Sender: FDA-Public Use
  Company Number: GB-TEVA-441780ISR

PATIENT
  Age: 72 Year
  Sex: Female

DRUGS (1)
  1. WARFARIN [Suspect]
     Indication: DEEP VEIN THROMBOSIS
     Dosage: VARIABLE
     Route: 048
     Dates: start: 2008

REACTIONS (4)
  - Gastric haemorrhage [Recovering/Resolving]
  - Melaena [Unknown]
  - Dyspnoea [Unknown]
  - Anaemia [Unknown]
